FAERS Safety Report 8840152 (Version 8)
Quarter: 2012Q4

REPORT INFORMATION
  Report Type: 
  Country: PT (occurrence: PT)
  Receive Date: 20121015
  Receipt Date: 20121211
  Transmission Date: 20130627
  Serious: Yes (Hospitalization)
  Sender: FDA-Public Use
  Company Number: PT-PFIZER INC-2012251247

PATIENT
  Age: 3 Year
  Sex: Male
  Weight: 16.5 kg

DRUGS (13)
  1. REFACTO AF [Suspect]
     Indication: HAEMORRHAGE PROPHYLAXIS
     Dosage: 2500 IU, UNK
     Route: 042
     Dates: start: 20120919, end: 20120919
  2. REFACTO AF [Suspect]
     Dosage: 1500 IU, UNK
     Route: 042
     Dates: start: 20120920, end: 20120920
  3. REFACTO AF [Suspect]
     Dosage: 1000 IU, UNK
     Route: 042
     Dates: start: 20120921, end: 20120921
  4. REFACTO AF [Suspect]
     Dosage: 1000 IU, UNK
     Route: 042
     Dates: start: 20120922, end: 20120922
  5. REFACTO AF [Suspect]
     Dosage: 500 IU, UNK
     Route: 042
     Dates: start: 20120923, end: 20120923
  6. REFACTO AF [Suspect]
     Dosage: 500 IU, 1x/day
     Route: 042
     Dates: start: 20120924, end: 20120924
  7. REFACTO AF [Suspect]
     Dosage: 500 IU, 1x/day
     Route: 042
     Dates: start: 20120925, end: 20120925
  8. REFACTO AF [Suspect]
     Dosage: 500 IU, 1x/day
     Route: 042
     Dates: start: 20120926, end: 20120926
  9. REFACTO AF [Suspect]
     Dosage: 500 IU, 1x/day
     Route: 042
     Dates: start: 20120927, end: 20120927
  10. REFACTO AF [Suspect]
     Dosage: 500 IU, 1x/day
     Route: 042
     Dates: start: 20120928, end: 20120928
  11. REFACTO AF [Suspect]
     Dosage: 500 IU, 1x/day
     Route: 042
     Dates: start: 20120929, end: 20120929
  12. REFACTO AF [Suspect]
     Dosage: 3000 IU, UNK
     Route: 042
     Dates: start: 20121001, end: 20121001
  13. REFACTO AF [Suspect]
     Dosage: 2000 IU, UNK
     Route: 042
     Dates: start: 20121002, end: 20121002

REACTIONS (2)
  - Anti factor VIII antibody positive [Recovered/Resolved]
  - Haematemesis [Recovered/Resolved]
